FAERS Safety Report 5146645-5 (Version None)
Quarter: 2006Q4

REPORT INFORMATION
  Report Type: 
  Country: None (occurrence: None)
  Receive Date: 20061109
  Receipt Date: 20061031
  Transmission Date: 20070319
  Serious: Yes (Death, Life-Threatening, Other)
  Sender: FDA-Public Use
  Company Number: GB-AVENTIS-200621397GDDC

PATIENT
  Age: 68 Year
  Sex: Male

DRUGS (10)
  1. ARAVA [Suspect]
     Route: 048
     Dates: start: 19991216
  2. ATENOLOL [Concomitant]
     Route: 048
  3. ATORVASTATIN CALCIUM [Concomitant]
     Dosage: DOSE: UNK
     Route: 048
  4. CLOPIDOGREL [Concomitant]
     Route: 048
  5. CO-PROXAMOL (PARACETAMOL, DEXTROPROPOXYPHEN) [Concomitant]
     Dosage: DOSE: 8 DF
     Route: 048
  6. FUROSEMIDE [Concomitant]
     Route: 048
  7. OMEPRAZOLE [Concomitant]
     Route: 048
  8. RAMIPRIL [Concomitant]
     Dosage: DOSE: UNK
     Route: 048
  9. PREDNISOLONE [Concomitant]
     Route: 048
  10. TEMAZEPAM [Concomitant]
     Dosage: DOSE: UNK
     Route: 048

REACTIONS (1)
  - CARDIAC ARREST [None]
